FAERS Safety Report 6254647-0 (Version None)
Quarter: 2009Q3

REPORT INFORMATION
  Report Type: 
  Country: None (occurrence: None)
  Receive Date: 20090702
  Receipt Date: 20090625
  Transmission Date: 20100115
  Serious: Yes (Hospitalization)
  Sender: FDA-Public Use
  Company Number: B0578833A

PATIENT
  Sex: Female

DRUGS (6)
  1. VALTREX [Suspect]
     Indication: HERPES ZOSTER
     Dosage: 1000MG THREE TIMES PER DAY
     Route: 048
     Dates: start: 20090608, end: 20090610
  2. DEPAS [Concomitant]
     Indication: INSOMNIA
     Dosage: 1MG PER DAY
     Route: 048
  3. LOXONIN [Concomitant]
     Indication: BACK PAIN
     Dosage: 60MG PER DAY
     Route: 048
  4. SELBEX [Concomitant]
     Dosage: 50MG PER DAY
     Route: 048
  5. BEZATOL SR [Concomitant]
     Dosage: 100MG TWICE PER DAY
     Route: 048
  6. EURODIN [Concomitant]
     Indication: INSOMNIA
     Dosage: 1MG PER DAY
     Route: 048

REACTIONS (4)
  - DIZZINESS [None]
  - ENCEPHALOPATHY [None]
  - HEADACHE [None]
  - MALAISE [None]
